FAERS Safety Report 15192901 (Version 6)
Quarter: 2019Q2

REPORT INFORMATION
  Report Type: Spontaneous
  Country: US (occurrence: US)
  Receive Date: 20180725
  Receipt Date: 20190417
  Transmission Date: 20190711
  Serious: Yes (Hospitalization)
  Sender: FDA-Public Use
  Company Number: US-BIOGEN-2018BI00612338

PATIENT
  Age: 11 Year
  Sex: Male

DRUGS (34)
  1. SPINRAZA [Suspect]
     Active Substance: NUSINERSEN
     Route: 050
     Dates: start: 20180905
  2. ALBUTEROL SULFATE. [Concomitant]
     Active Substance: ALBUTEROL SULFATE
     Indication: PROPHYLAXIS AGAINST BRONCHOSPASM
     Dosage: CONCENTRATION 2.5MG/0.5 ML - INHALE 0.5 ML EVERY 4 HOURS PRN
     Route: 048
  3. FLUTICASONE. [Concomitant]
     Active Substance: FLUTICASONE
     Indication: PRODUCT USED FOR UNKNOWN INDICATION
     Route: 050
  4. RANITIDINE. [Concomitant]
     Active Substance: RANITIDINE
     Indication: PRODUCT USED FOR UNKNOWN INDICATION
     Route: 050
  5. VALPROIC ACID. [Concomitant]
     Active Substance: VALPROIC ACID
     Indication: SPINAL MUSCULAR ATROPHY
     Dosage: BASELINE
     Route: 065
  6. VALPROIC ACID. [Concomitant]
     Active Substance: VALPROIC ACID
     Dosage: 250 MG/5 ML
     Route: 048
  7. CARBAMAZEPINE. [Concomitant]
     Active Substance: CARBAMAZEPINE
     Indication: PRODUCT USED FOR UNKNOWN INDICATION
     Dosage: 100MG/5ML ORAL SUSPENSION
     Route: 048
  8. CIPROFLOXACIN. [Concomitant]
     Active Substance: CIPROFLOXACIN
     Indication: PRODUCT USED FOR UNKNOWN INDICATION
     Dosage: 0.3% - INSTILL 3 DROPS INTO THE RIGHT EAR TWO TIMES DAILY.  3 DROPS, RIGHT EAR TWICE DAILY X 7 DAYS
     Route: 001
  9. DEXAMETHASONE. [Concomitant]
     Active Substance: DEXAMETHASONE
     Indication: PRODUCT USED FOR UNKNOWN INDICATION
     Dosage: 0.1% - INSTILL 3 DROPS INTO THE RIGHT EAR TWO TIMES DAILY.  3 DROPS, RIGHT EAR TWICE A DAY FOR 7 ...
     Route: 001
  10. POLYETHYLENE GLYCOL [Concomitant]
     Active Substance: POLYETHYLENE GLYCOLS
     Indication: PRODUCT USED FOR UNKNOWN INDICATION
     Route: 048
  11. REFRESH OPTIVE ADVANCED [Concomitant]
     Active Substance: CARBOXYMETHYLCELLULOSE SODIUM\GLYCERIN\POLYSORBATE 80
     Indication: PRODUCT USED FOR UNKNOWN INDICATION
     Dosage: 2 DROPS INTO BOTH EYES IF NEEDED
     Route: 047
  12. LEVOCARNITINE. [Concomitant]
     Active Substance: LEVOCARNITINE
     Indication: PRODUCT USED FOR UNKNOWN INDICATION
     Dosage: 100 MG/ML
     Route: 048
  13. SODIUM FLUORIDE. [Concomitant]
     Active Substance: SODIUM FLUORIDE
     Indication: PRODUCT USED FOR UNKNOWN INDICATION
     Route: 048
  14. SPINRAZA [Suspect]
     Active Substance: NUSINERSEN
     Indication: SPINAL MUSCULAR ATROPHY
     Dosage: HAS BEEN ON SPINRAZA FOR OVER A YEAR
     Route: 050
     Dates: start: 20170530
  15. CHLORHEXIDINE GLUCONATE. [Concomitant]
     Active Substance: CHLORHEXIDINE GLUCONATE
     Indication: INFECTION PROPHYLAXIS
     Dosage: 0.12% MOUTHWASH
     Route: 048
  16. FLUTICASONE. [Concomitant]
     Active Substance: FLUTICASONE
     Indication: PRODUCT USED FOR UNKNOWN INDICATION
     Dosage: INSTILL 1 SPRAY INTO EACH NOSTRIL ONCE DAILY
     Route: 045
  17. CALCIUM CARBONATE. [Concomitant]
     Active Substance: CALCIUM CARBONATE
     Indication: VITAMIN SUPPLEMENTATION
     Route: 048
  18. LORATADINE. [Concomitant]
     Active Substance: LORATADINE
     Indication: RHINITIS ALLERGIC
     Dosage: 5 MG/5 ML
     Route: 048
  19. PROAIR HFA [Concomitant]
     Active Substance: ALBUTEROL SULFATE
     Indication: BRONCHOSPASM
     Dosage: INHALE 4 PUFFS BY MOUTH EVERY 4 HOURS IF NEEDED
     Route: 048
  20. LORATADINE. [Concomitant]
     Active Substance: LORATADINE
     Indication: PRODUCT USED FOR UNKNOWN INDICATION
     Route: 050
  21. TEGRETOL [Concomitant]
     Active Substance: CARBAMAZEPINE
     Indication: PAIN
     Route: 065
  22. CHILDREN^S PAIN AND FEVER RELIEF [Concomitant]
     Indication: PAIN
     Dosage: 160MG/5ML
     Route: 048
  23. IBUPROFEN. [Concomitant]
     Active Substance: IBUPROFEN
     Indication: PAIN
     Route: 048
  24. PULMOZYME [Concomitant]
     Active Substance: DORNASE ALFA
     Indication: PRODUCT USED FOR UNKNOWN INDICATION
     Dosage: 1 MG/ML SOLUTION
     Route: 065
  25. SPINRAZA [Suspect]
     Active Substance: NUSINERSEN
     Dosage: AS SCHEDULED
     Route: 050
     Dates: start: 20180926
  26. AMINO ACIDS [Concomitant]
     Active Substance: AMINO ACIDS
     Indication: PRODUCT USED FOR UNKNOWN INDICATION
     Route: 050
  27. LEVOCARNITINE. [Concomitant]
     Active Substance: LEVOCARNITINE
     Indication: PRODUCT USED FOR UNKNOWN INDICATION
     Route: 050
  28. CETIRIZINE [Concomitant]
     Active Substance: CETIRIZINE HYDROCHLORIDE
     Indication: HYPERSENSITIVITY
     Dosage: 5MG/5ML
     Route: 048
  29. LACTOBACILLUS RHAMNOSUS [Concomitant]
     Active Substance: LACTOBACILLUS RHAMNOSUS
     Indication: PRODUCT USED FOR UNKNOWN INDICATION
     Dosage: 1 BILLION ORAL POWDER PACKET
     Route: 048
  30. PEDIATRIC MULTIVITAMIN IRON ORAL DROPS [Concomitant]
     Indication: VITAMIN SUPPLEMENTATION
     Dosage: CONTAINS IRON 10 MG/ML
     Route: 048
  31. VALPROIC ACID. [Concomitant]
     Active Substance: VALPROIC ACID
     Route: 065
  32. DIAZEPAM. [Concomitant]
     Active Substance: DIAZEPAM
     Indication: SEIZURE
     Dosage: INSTILL 10 MG RECTALLY FOR SEIZURES LASTING GREATER THAN 5 MINUTES
     Route: 054
  33. RANITIDINE. [Concomitant]
     Active Substance: RANITIDINE
     Indication: GASTROOESOPHAGEAL REFLUX DISEASE
     Dosage: 15 MG/ML
     Route: 048
  34. TOBRAMYCIN 0.3% - DEXAMETHASONE 0.1% [Concomitant]
     Indication: OTORRHOEA
     Dosage: INSTILL 3 DROPS TO EARS THREE TIMES A DAY FOR 7-10 DAYS
     Route: 001

REACTIONS (7)
  - Mastoiditis [Unknown]
  - Subdural empyema [Recovered/Resolved]
  - Encephalitis [Recovered/Resolved]
  - Sinusitis [Unknown]
  - Drain of cerebral subdural space [Unknown]
  - Seizure [Recovered/Resolved]
  - Subdural haemorrhage [Recovered/Resolved]

NARRATIVE: CASE EVENT DATE: 201807
